FAERS Safety Report 6502093-4 (Version None)
Quarter: 2009Q4

REPORT INFORMATION
  Report Type: 
  Country: None (occurrence: None)
  Receive Date: 20091214
  Receipt Date: 20091207
  Transmission Date: 20100525
  Serious: Yes (Life-Threatening, Hospitalization, Other)
  Sender: FDA-Public Use
  Company Number: 2009SP037004

PATIENT
  Age: 71 Year
  Sex: Female
  Weight: 62 kg

DRUGS (5)
  1. ROCURONIUM BROMIDE [Suspect]
     Indication: NEUROMUSCULAR BLOCKING THERAPY
     Dosage: 50 MG, IV
     Route: 042
     Dates: start: 20090603, end: 20090603
  2. FLUMARIN (FLOMOXEF SODIUM) [Suspect]
     Indication: PROPHYLAXIS
     Dosage: 1 GM; IV
     Route: 042
     Dates: start: 20090603, end: 20090603
  3. FRESOFOL [Concomitant]
  4. ULTIVA [Concomitant]
  5. FENTANYL-100 [Concomitant]

REACTIONS (5)
  - ANAPHYLACTIC SHOCK [None]
  - ANAPHYLACTOID REACTION [None]
  - ATRIOVENTRICULAR BLOCK SECOND DEGREE [None]
  - DRUG HYPERSENSITIVITY [None]
  - ERYTHEMA [None]
